FAERS Safety Report 4314633-4 (Version None)
Quarter: 2004Q1

REPORT INFORMATION
  Report Type: 
  Country: None (occurrence: None)
  Receive Date: 20040308
  Receipt Date: 20040225
  Transmission Date: 20041129
  Serious: Yes (Hospitalization)
  Sender: FDA-Public Use
  Company Number: FRP04000188

PATIENT
  Age: 62 Year
  Sex: Male

DRUGS (21)
  1. DANTRIUM [Suspect]
     Indication: QUADRIPLEGIA
     Dosage: 150 MG, 1 /DAY, ORAL
     Route: 048
     Dates: start: 20030925, end: 20031209
  2. DEBRIDAT           (TRIMEBUTINE MALEATE) [Suspect]
     Indication: FLATULENCE
     Dosage: 300 MG, 1/DAY, INTRAMUSCULAR
     Route: 030
     Dates: start: 20031110, end: 20031229
  3. ERYTHROCIN STEARATE [Suspect]
     Dosage: 300 MG, 1 /DAY
     Dates: start: 20031031, end: 20031209
  4. ATARAX [Concomitant]
  5. MODOPAR (BENSERAZIDE HYDROCHLORIDE, LEVODOPA) [Concomitant]
  6. NOCTRAN 10 (CLORAZEPATE DIPOTASSIUM, ACEPROMETAZINE, ACEPROMAZINE) [Concomitant]
  7. BACLOFEN [Concomitant]
  8. OMEPRAZOLE [Concomitant]
  9. POTASSIUM CHLORIDE [Concomitant]
  10. VECTARION (ALMITRINE DIMESILATE) [Concomitant]
  11. LASIX [Concomitant]
  12. FORLAX (MACROGOL) [Concomitant]
  13. DOLIPRANE [Concomitant]
  14. MOTILIUM [Concomitant]
  15. GAVISCON (SODIUM ALGINATE, SODIUM BICARBONATE) [Concomitant]
  16. PRIMPERAN TAB [Concomitant]
  17. LIORESAL [Concomitant]
  18. VANCOMYCIN [Concomitant]
  19. CEFTAZIDIME PENTAHYDRATE [Concomitant]
  20. ACETAMINOPHEN [Concomitant]
  21. SPASFON (PHLOROGLUCINOL, TRIMETHYLPHLOROGLUCINOL) [Concomitant]

REACTIONS (6)
  - ABDOMINAL PAIN [None]
  - FLATULENCE [None]
  - GASTRITIS [None]
  - HAEMATOCHEZIA [None]
  - MICROCYTIC ANAEMIA [None]
  - PANCYTOPENIA [None]
